FAERS Safety Report 6878107-9 (Version None)
Quarter: 2010Q2

REPORT INFORMATION
  Report Type: 
  Country: None (occurrence: None)
  Receive Date: 20100616
  Receipt Date: 20100224
  Transmission Date: 20101027
  Serious: No
  Sender: FDA-Public Use
  Company Number: DSA_42523_2010

PATIENT
  Sex: Female

DRUGS (6)
  1. XENAZINE [Suspect]
     Indication: HUNTINGTON'S CHOREA
     Dosage: 12.5 MG, ONCE AT BEDTIME ORAL, 12.5 MG, ONCE IN THE MORNING ORAL
     Route: 048
     Dates: start: 20100201
  2. XENAZINE [Suspect]
     Indication: HUNTINGTON'S CHOREA
     Dosage: 12.5 MG, ONCE AT BEDTIME ORAL, 12.5 MG, ONCE IN THE MORNING ORAL
     Route: 048
     Dates: start: 20100201
  3. ATENOLOL [Concomitant]
  4. AMLODIPINE [Concomitant]
  5. PREVACID [Concomitant]
  6. ASPIRIN [Concomitant]

REACTIONS (2)
  - INSOMNIA [None]
  - RESTLESSNESS [None]
